FAERS Safety Report 4683064-X (Version None)
Quarter: 2005Q2

REPORT INFORMATION
  Report Type: 
  Country: None (occurrence: None)
  Receive Date: 20050602
  Receipt Date: 20050328
  Transmission Date: 20051028
  Serious: No
  Sender: FDA-Public Use
  Company Number: USA050393901

PATIENT
  Age: 75 Year
  Sex: Female

DRUGS (7)
  1. FORTEO [Suspect]
     Indication: OSTEOPOROSIS
     Dates: start: 20050223
  2. EVISTA [Suspect]
     Dosage: 60 MG DAY
  3. PREDNISONE TAB [Concomitant]
  4. HYDROCODONE BITARTRATE [Concomitant]
  5. ZANAFLEX [Concomitant]
  6. LIPITOR [Concomitant]
  7. CYMBALTA [Suspect]
     Indication: INJURY

REACTIONS (3)
  - EYE PRURITUS [None]
  - SWELLING FACE [None]
  - URTICARIA [None]
